FAERS Safety Report 8857494 (Version 2)
Quarter: 2012Q4

REPORT INFORMATION
  Report Type: Report from Study
  Country: FR (occurrence: FR)
  Receive Date: 20121024
  Receipt Date: 20121126
  Transmission Date: 20130627
  Serious: Yes (Hospitalization)
  Sender: FDA-Public Use
  Company Number: FR-JNJFOC-20121009976

PATIENT
  Age: 13 Year
  Sex: Female
  Weight: 50.6 kg

DRUGS (8)
  1. REMICADE [Suspect]
     Indication: CROHN^S DISEASE
     Route: 042
     Dates: start: 20101123
  2. REMICADE [Suspect]
     Indication: CROHN^S DISEASE
     Route: 042
     Dates: start: 20100420
  3. HUMIRA [Suspect]
     Indication: CROHN^S DISEASE
     Dates: start: 20120102
  4. HUMIRA [Suspect]
     Indication: CROHN^S DISEASE
     Dates: start: 20111010
  5. HUMIRA [Suspect]
     Indication: CROHN^S DISEASE
     Dates: start: 20110322
  6. HUMIRA [Suspect]
     Indication: CROHN^S DISEASE
     Dates: start: 20101229
  7. METHOTREXATE [Concomitant]
     Dates: start: 20110315
  8. METHOTREXATE [Concomitant]
     Dates: start: 20110322

REACTIONS (1)
  - Anal abscess [Recovered/Resolved]
